FAERS Safety Report 6369595-5 (Version None)
Quarter: 2009Q3

REPORT INFORMATION
  Report Type: 
  Country: None (occurrence: None)
  Receive Date: 20090923
  Receipt Date: 20090923
  Transmission Date: 20100115
  Serious: Yes (Hospitalization)
  Sender: FDA-Public Use
  Company Number: PHHO2009DE04624

PATIENT
  Sex: Female
  Weight: 90.2 kg

DRUGS (2)
  1. ALISKIREN ALI+TAB+HT [Suspect]
     Dosage: 150 MG, QD
     Route: 048
  2. HYDROCHLOROTHIAZIDE [Suspect]
     Dosage: 12.5 MG, QD

REACTIONS (2)
  - COLPOSUSPENSION [None]
  - STRESS URINARY INCONTINENCE [None]
